FAERS Safety Report 6647265-3 (Version None)
Quarter: 2010Q1

REPORT INFORMATION
  Report Type: 
  Country: None (occurrence: None)
  Receive Date: 20100323
  Receipt Date: 20100311
  Transmission Date: 20100710
  Serious: Yes (Other)
  Sender: FDA-Public Use
  Company Number: A0850971A

PATIENT
  Sex: Male
  Weight: 17 kg

DRUGS (1)
  1. SERETIDE [Suspect]
     Indication: ASTHMA
     Route: 065
     Dates: start: 20100108, end: 20100310

REACTIONS (1)
  - ASTHMATIC CRISIS [None]
